FAERS Safety Report 6406246-5 (Version None)
Quarter: 2009Q4

REPORT INFORMATION
  Report Type: 
  Country: None (occurrence: None)
  Receive Date: 20091019
  Receipt Date: 20091007
  Transmission Date: 20100525
  Serious: Yes (Other)
  Sender: FDA-Public Use
  Company Number: PHHY2009FR43474

PATIENT

DRUGS (2)
  1. SIRDALUD [Suspect]
     Indication: MUSCLE SPASTICITY
  2. TRILEPTAL [Suspect]
     Dosage: UNK

REACTIONS (1)
  - CONVULSION [None]
